FAERS Safety Report 25907928 (Version 1)
Quarter: 2025Q4

REPORT INFORMATION
  Report Type: Spontaneous
  Country: US (occurrence: US)
  Receive Date: 20251010
  Receipt Date: 20251010
  Transmission Date: 20260118
  Serious: No
  Sender: PFIZER
  Company Number: US-PFIZER INC-202500199942

PATIENT

DRUGS (1)
  1. LEVOXYL [Suspect]
     Active Substance: LEVOTHYROXINE SODIUM
     Dosage: 25 UG, 3X/DAY

REACTIONS (2)
  - Hyperhidrosis [Not Recovered/Not Resolved]
  - Hypersensitivity [Unknown]
